FAERS Safety Report 16378817 (Version 1)
Quarter: 2019Q2

REPORT INFORMATION
  Report Type: Spontaneous
  Country: US (occurrence: US)
  Receive Date: 20190417
  Receipt Date: 20190417
  Transmission Date: 20190711
  Serious: No
  Sender: FDA-Public Use
  Company Number: None

PATIENT
  Age: 44 Year
  Sex: Female
  Weight: 116.1 kg

DRUGS (6)
  1. OMEPRAZOLE. [Concomitant]
     Active Substance: OMEPRAZOLE
  2. MULTIVITAMIN [Concomitant]
     Active Substance: VITAMINS
  3. TRAMADOL. [Concomitant]
     Active Substance: TRAMADOL
  4. DULOXETINE 20 MG [Suspect]
     Active Substance: DULOXETINE
     Indication: FIBROMYALGIA
     Dosage: ?          QUANTITY:1 CAPSULE(S);?
     Route: 048
     Dates: start: 20190316, end: 20190417
  5. DULOXETINE 20 MG [Suspect]
     Active Substance: DULOXETINE
     Indication: POST-TRAUMATIC STRESS DISORDER
     Dosage: ?          QUANTITY:1 CAPSULE(S);?
     Route: 048
     Dates: start: 20190316, end: 20190417
  6. MONTELUKAST SODIUM. [Concomitant]
     Active Substance: MONTELUKAST SODIUM

REACTIONS (5)
  - Painful respiration [None]
  - Influenza like illness [None]
  - Sinusitis [None]
  - Rhinorrhoea [None]
  - Cough [None]

NARRATIVE: CASE EVENT DATE: 20190328
